FAERS Safety Report 25226534 (Version 4)
Quarter: 2025Q2

REPORT INFORMATION
  Report Type: Report from Study
  Country: US (occurrence: US)
  Receive Date: 20250422
  Receipt Date: 20250616
  Transmission Date: 20250717
  Serious: Yes (Hospitalization, Other)
  Sender: BIOVITRUM
  Company Number: US-BIOVITRUM-2024-US-007681

PATIENT
  Age: 55 Year
  Sex: Female

DRUGS (2)
  1. KINERET [Suspect]
     Active Substance: ANAKINRA
     Indication: Rheumatoid arthritis
     Route: 058
     Dates: start: 20240503, end: 202502
  2. ENBREL [Suspect]
     Active Substance: ETANERCEPT
     Indication: Product used for unknown indication

REACTIONS (17)
  - Systemic lupus erythematosus [Unknown]
  - Encephalitis [Unknown]
  - Condition aggravated [Unknown]
  - Encephalopathy [Unknown]
  - Neurosyphilis [Unknown]
  - Fall [Unknown]
  - Hand fracture [Unknown]
  - Injection site rash [Unknown]
  - Injection site pain [Unknown]
  - Product dose omission issue [Unknown]
  - Contusion [Unknown]
  - Hypersensitivity [Unknown]
  - Muscle spasms [Unknown]
  - Immune system disorder [Unknown]
  - Intentional dose omission [Unknown]
  - Arthritis [Unknown]
  - Drug ineffective [Unknown]
